FAERS Safety Report 9506631 (Version 1)
Quarter: 2013Q3

REPORT INFORMATION
  Report Type: Spontaneous
  Country: IE (occurrence: IE)
  Receive Date: 20130908
  Receipt Date: 20130908
  Transmission Date: 20140515
  Serious: Yes (Other)
  Sender: FDA-Public Use
  Company Number: IE-MYLANLABS-2013S1019347

PATIENT
  Age: 45 Year
  Sex: Female

DRUGS (2)
  1. METHOTREXATE [Suspect]
     Indication: SERONEGATIVE ARTHRITIS
     Dosage: 10MG WEEKLY
     Route: 065
  2. PREDNISOLONE [Suspect]
     Indication: SERONEGATIVE ARTHRITIS
     Dosage: 5MG
     Route: 065

REACTIONS (1)
  - Necrotising fasciitis [Recovered/Resolved]
